FAERS Safety Report 4749614-X (Version None)
Quarter: 2005Q3

REPORT INFORMATION
  Report Type: 
  Country: None (occurrence: None)
  Receive Date: 20050822
  Receipt Date: 20050809
  Transmission Date: 20060218
  Serious: Yes (Hospitalization)
  Sender: FDA-Public Use
  Company Number: FRWYE895310AUG05

PATIENT
  Sex: Female

DRUGS (7)
  1. ENBREL [Suspect]
     Indication: RHEUMATOID ARTHRITIS
     Route: 058
     Dates: start: 20050613, end: 20050701
  2. ENBREL [Suspect]
     Route: 058
     Dates: start: 20050701, end: 20050721
  3. ENBREL [Suspect]
     Route: 058
     Dates: start: 20050722
  4. CORTANCYL [Concomitant]
     Route: 048
  5. ESOMEPRAZOLE [Concomitant]
     Dosage: UNKNNOWN
  6. DIFFU K [Concomitant]
     Dosage: UNKNOWN
  7. ZOLOFT [Concomitant]
     Dosage: UNKNOWN

REACTIONS (6)
  - BLOOD PRESSURE DECREASED [None]
  - HEADACHE [None]
  - PALPITATIONS [None]
  - RESTLESS LEGS SYNDROME [None]
  - SYNOVIORTHESIS [None]
  - TREMOR [None]
